FAERS Safety Report 6541931-6 (Version None)
Quarter: 2010Q1

REPORT INFORMATION
  Report Type: 
  Country: None (occurrence: None)
  Receive Date: 20100119
  Receipt Date: 20100107
  Transmission Date: 20100710
  Serious: Yes (Other)
  Sender: FDA-Public Use
  Company Number: JP-PFIZER INC-2009303555

PATIENT
  Age: 52 Year
  Sex: Female

DRUGS (4)
  1. ZITHROMAC SR [Suspect]
     Indication: PHARYNGITIS
     Dosage: 2 G, SINGLE
     Route: 048
     Dates: start: 20091121, end: 20091121
  2. TRANSAMIN [Concomitant]
     Dosage: UNK
     Route: 048
     Dates: start: 20091120, end: 20091122
  3. MAOUBUSHISAISHINTOU [Concomitant]
     Dosage: UNK
     Route: 048
     Dates: start: 20091121, end: 20091123
  4. PL GRAN. [Concomitant]
     Dosage: UNK
     Route: 048

REACTIONS (8)
  - ABDOMINAL DISCOMFORT [None]
  - ALTERED STATE OF CONSCIOUSNESS [None]
  - BLOOD PRESSURE DECREASED [None]
  - DEHYDRATION [None]
  - DIARRHOEA [None]
  - PYREXIA [None]
  - TRANSIENT ISCHAEMIC ATTACK [None]
  - VOMITING [None]
